FAERS Safety Report 9998290 (Version 1)
Quarter: 2014Q1

REPORT INFORMATION
  Report Type: Report from Study
  Country: MX (occurrence: MX)
  Receive Date: 20140312
  Receipt Date: 20140312
  Transmission Date: 20141002
  Serious: Yes (Other)
  Sender: FDA-Public Use
  Company Number: MX-ROCHE-1362132

PATIENT
  Age: 77 Year
  Sex: Female
  Weight: 44 kg

DRUGS (2)
  1. HERCEPTIN [Suspect]
     Indication: BREAST CANCER
     Dosage: 21 DAYS CYCLES
     Route: 065
  2. ANASTROZOL [Suspect]
     Indication: BREAST CANCER
     Route: 065

REACTIONS (1)
  - Disease progression [Unknown]
